FAERS Safety Report 12189327 (Version 1)
Quarter: 2016Q1

REPORT INFORMATION
  Report Type: Report from Study
  Country: US (occurrence: US)
  Receive Date: 20160317
  Receipt Date: 20160317
  Transmission Date: 20160526
  Serious: Yes (Death, Life-Threatening, Hospitalization, Other)
  Sender: FDA-Public Use
  Company Number: US-TAKEDA-2015MPI006235

PATIENT
  Age: 73 Year
  Sex: Male

DRUGS (14)
  1. VANCOMYCIN [Suspect]
     Active Substance: VANCOMYCIN
     Dosage: 4500 MG, UNK
     Route: 042
     Dates: start: 20150907
  2. VINCRISTINE [Concomitant]
     Active Substance: VINCRISTINE
     Dosage: 1 MG, UNK
     Route: 042
     Dates: start: 20150910, end: 20150917
  3. VANCOMYCIN [Suspect]
     Active Substance: VANCOMYCIN
     Indication: PYREXIA
     Dosage: 3000 MG, UNK
     Route: 042
     Dates: start: 20150905
  4. VANCOMYCIN [Suspect]
     Active Substance: VANCOMYCIN
     Dosage: 3750 MG, UNK
     Route: 042
     Dates: start: 20150909, end: 20150910
  5. ARA-C [Concomitant]
     Active Substance: CYTARABINE
     Indication: ACUTE LYMPHOCYTIC LEUKAEMIA
     Dosage: 50 MG, UNK
     Route: 037
     Dates: start: 20150827, end: 20150827
  6. G-CSF [Concomitant]
     Active Substance: GRANULOCYTE COLONY-STIMULATING FACTOR NOS
     Indication: ACUTE LYMPHOCYTIC LEUKAEMIA
     Dosage: 300 ?G, UNK
     Route: 065
  7. VINCRISTINE [Concomitant]
     Active Substance: VINCRISTINE
     Indication: ACUTE LYMPHOCYTIC LEUKAEMIA
     Dosage: 2 MG, UNK
     Route: 042
     Dates: start: 20150827, end: 20150903
  8. LISINOPRIL. [Concomitant]
     Active Substance: LISINOPRIL
     Dosage: 20 MG, QD
  9. HYDROCHLOROTHIAZIDE. [Concomitant]
     Active Substance: HYDROCHLOROTHIAZIDE
     Dosage: 12.5 MG, UNK
  10. IXAZOMIB [Suspect]
     Active Substance: IXAZOMIB
     Indication: ACUTE LYMPHOCYTIC LEUKAEMIA
     Dosage: 3 MG, UNK
     Route: 048
     Dates: start: 20150826, end: 20150917
  11. PREDNISONE. [Concomitant]
     Active Substance: PREDNISONE
     Indication: ACUTE LYMPHOCYTIC LEUKAEMIA
     Dosage: 40 MG/M2, UNK
     Route: 048
     Dates: start: 20150827, end: 20150902
  12. GLIPIZIDE. [Concomitant]
     Active Substance: GLIPIZIDE
     Indication: HYPOGLYCAEMIA
     Dosage: 2.5 MG, QD
  13. DOXORUBICIN [Concomitant]
     Active Substance: DOXORUBICIN
     Indication: ACUTE LYMPHOCYTIC LEUKAEMIA
     Dosage: 30 MG/M2, QD
     Route: 042
     Dates: start: 20150827, end: 20150828
  14. SIMVASTATIN. [Concomitant]
     Active Substance: SIMVASTATIN
     Dosage: 40 MG, UNK

REACTIONS (1)
  - Renal failure [Fatal]

NARRATIVE: CASE EVENT DATE: 20150917
